FAERS Safety Report 7954706-8 (Version None)
Quarter: 2011Q4

REPORT INFORMATION
  Report Type: 
  Country: None (occurrence: None)
  Receive Date: 20111129
  Receipt Date: 20111116
  Transmission Date: 20120403
  Serious: Yes (Other)
  Sender: FDA-Public Use
  Company Number: GB-ACCORD-011401

PATIENT
  Age: 48 Year
  Sex: Male

DRUGS (9)
  1. LEUCOVORIN (LEUCOVORIN) [Concomitant]
  2. OXALIPLATIN [Suspect]
     Indication: GASTROINTESTINAL CARCINOMA
  3. AVASTIN [Suspect]
     Indication: GASTROINTESTINAL CARCINOMA
     Dates: end: 20110727
  4. OXALIPLATIN [Suspect]
     Indication: GASTROINTESTINAL CARCINOMA
  5. CAPECITABINE [Suspect]
     Indication: GASTROINTESTINAL CARCINOMA
  6. CAPECITABINE [Suspect]
     Indication: GASTROINTESTINAL CARCINOMA
  7. IRINOTECAN HCL [Suspect]
     Indication: GASTROINTESTINAL CARCINOMA
     Dates: end: 20110809
  8. FLUOROURACIL [Suspect]
     Indication: GASTROINTESTINAL CARCINOMA
     Dates: end: 20110809
  9. AVASTIN [Suspect]
     Indication: GASTROINTESTINAL CARCINOMA
     Dates: end: 20110727

REACTIONS (4)
  - NEOPLASM PROGRESSION [None]
  - SPORTS INJURY [None]
  - COLON CANCER METASTATIC [None]
  - HAND FRACTURE [None]
